FAERS Safety Report 7687888-6 (Version None)
Quarter: 2011Q3

REPORT INFORMATION
  Report Type: 
  Country: None (occurrence: None)
  Receive Date: 20110817
  Receipt Date: 20110811
  Transmission Date: 20111222
  Serious: Yes (Other)
  Sender: FDA-Public Use
  Company Number: AR-AMGEN-US373564

PATIENT
  Age: 68 Year
  Sex: Male

DRUGS (5)
  1. CALCIUM CARBONATE [Concomitant]
     Dosage: 500 MG, QD
     Route: 048
     Dates: start: 20071209
  2. ENALAPRIL MALEATE [Concomitant]
     Dosage: UNK UNK, UNK
     Dates: start: 20080919
  3. ERGOCALCIFEROL [Concomitant]
     Dosage: 400 IU, QD
     Route: 048
     Dates: start: 20071206
  4. DICLOFENAC SODIUM [Concomitant]
     Dosage: 75 MG, QD
     Route: 048
  5. DENOSUMAB [Suspect]
     Indication: METASTASES TO BONE
     Dosage: UNK UNK, QMO
     Route: 058
     Dates: start: 20071206, end: 20090528

REACTIONS (1)
  - OSTEONECROSIS [None]
